FAERS Safety Report 26039484 (Version 1)
Quarter: 2025Q4

REPORT INFORMATION
  Report Type: Spontaneous
  Country: US (occurrence: None)
  Receive Date: 20251113
  Receipt Date: 20251113
  Transmission Date: 20260118
  Serious: No
  Sender: CHIESI
  Company Number: US-CHIESI-2024CHF06869

PATIENT
  Sex: Female

DRUGS (11)
  1. BETHKIS [Suspect]
     Active Substance: TOBRAMYCIN
     Indication: Pseudomonas infection
     Dosage: 2 MILLILITER, BID
  2. BETHKIS [Suspect]
     Active Substance: TOBRAMYCIN
     Indication: Off label use
  3. BETHKIS [Suspect]
     Active Substance: TOBRAMYCIN
     Indication: Burkholderia mallei infection
  4. BETHKIS [Suspect]
     Active Substance: TOBRAMYCIN
     Indication: Burkholderia pseudomallei infection
  5. MUPIROCIN [Concomitant]
     Active Substance: MUPIROCIN
     Indication: Product used for unknown indication
     Dosage: UNK
  6. ALBUTEROL SULFATE [Concomitant]
     Active Substance: ALBUTEROL SULFATE
     Indication: Product used for unknown indication
     Dosage: UNK
  7. IPRATROPIUM BROMIDE [Concomitant]
     Active Substance: IPRATROPIUM BROMIDE
     Indication: Product used for unknown indication
     Dosage: UNK
  8. BUDESONIDE [Concomitant]
     Active Substance: BUDESONIDE
     Indication: Product used for unknown indication
     Dosage: UNK
  9. FAMOTIDINE [Concomitant]
     Active Substance: FAMOTIDINE
     Indication: Product used for unknown indication
     Dosage: UNK
  10. GLYCOPYRROLATE [Concomitant]
     Active Substance: GLYCOPYRROLATE
     Indication: Product used for unknown indication
     Dosage: UNK
  11. VITAMINS [Concomitant]
     Active Substance: VITAMINS
     Indication: Product used for unknown indication
     Dosage: UNK

REACTIONS (3)
  - Off label use [Recovered/Resolved]
  - Off label use [Recovered/Resolved]
  - Off label use [Recovered/Resolved]
